FAERS Safety Report 5398787-7 (Version None)
Quarter: 2007Q3

REPORT INFORMATION
  Report Type: 
  Country: None (occurrence: None)
  Receive Date: 20070724
  Receipt Date: 20070711
  Transmission Date: 20080115
  Serious: Yes (Life-Threatening)
  Sender: FDA-Public Use
  Company Number: SU-2006-005380

PATIENT
  Age: 860 Month
  Sex: Female

DRUGS (3)
  1. OLMESARTAN MEDOXOMIL [Suspect]
     Indication: HYPERTENSION
     Dosage: 20 MG (20 MG, EVERY OTHER DAY), PER ORAL
     Route: 048
     Dates: start: 20060501, end: 20060501
  2. ESPIRONOLACTONA (SPIRONOLACTONE) (UNKNOWN) (SPIRONOLACTONE) [Concomitant]
  3. EUTIROX (LEVOTHYROXINE) (LEVOTHYROXINE) [Concomitant]

REACTIONS (2)
  - ASTHENIA [None]
  - HYPOTENSION [None]
